FAERS Safety Report 4812276-7 (Version None)
Quarter: 2005Q4

REPORT INFORMATION
  Report Type: 
  Country: None (occurrence: None)
  Receive Date: 20051028
  Receipt Date: 20041001
  Transmission Date: 20060501
  Serious: No
  Sender: FDA-Public Use
  Company Number: US-GLAXOSMITHKLINE-A0528125A

PATIENT
  Sex: Female

DRUGS (6)
  1. ADVAIR DISKUS 100/50 [Suspect]
     Indication: ASTHMA
     Route: 055
  2. FLONASE [Suspect]
     Dosage: 2SPR TWICE PER DAY
     Route: 045
     Dates: end: 20040901
  3. ADVAIR DISKUS 100/50 [Concomitant]
  4. BLOOD PRESSURE MEDICATION [Concomitant]
  5. PRILOSEC [Concomitant]
  6. LEVOXYL [Concomitant]

REACTIONS (3)
  - EPISTAXIS [None]
  - NASAL DISCOMFORT [None]
  - ORAL CANDIDIASIS [None]
